FAERS Safety Report 24412269 (Version 1)
Quarter: 2024Q4

REPORT INFORMATION
  Report Type: Spontaneous
  Country: RU (occurrence: RU)
  Receive Date: 20241008
  Receipt Date: 20241008
  Transmission Date: 20250114
  Serious: Yes (Hospitalization)
  Sender: ASTELLAS
  Company Number: RU-ASTELLAS-2024-AER-010760

PATIENT
  Sex: Female
  Weight: 2 kg

DRUGS (4)
  1. TACROLIMUS [Suspect]
     Active Substance: TACROLIMUS
     Indication: Renal and pancreas transplant
     Dosage: TARGET RANGE: 5^-8 NG/ML?5.5 MG/DAY IN 2 DOSES?USED UNDER BLOOD CONCENTRATION MONITORING
     Route: 064
     Dates: start: 2020
  2. MYCOPHENOLATE SODIUM [Concomitant]
     Active Substance: MYCOPHENOLATE SODIUM
     Indication: Renal and pancreas transplant
     Dosage: 720 MG/DAY
     Route: 064
     Dates: start: 2020, end: 202108
  3. METHYLPREDNISOLONE [Concomitant]
     Active Substance: METHYLPREDNISOLONE
     Indication: Renal and pancreas transplant
     Route: 064
  4. METHYLPREDNISOLONE [Concomitant]
     Active Substance: METHYLPREDNISOLONE
     Dosage: GRADUAL DOSE REDUCTION TO A MINIMUM TARGET OF 4 MG/DAY
     Route: 048
     Dates: start: 2020

REACTIONS (3)
  - Low birth weight baby [Recovering/Resolving]
  - Premature baby [Unknown]
  - Foetal exposure during pregnancy [Unknown]
